FAERS Safety Report 21541077 (Version 5)
Quarter: 2023Q1

REPORT INFORMATION
  Report Type: Spontaneous
  Country: MX (occurrence: MX)
  Receive Date: 20221102
  Receipt Date: 20230111
  Transmission Date: 20230418
  Serious: No
  Sender: FDA-Public Use
  Company Number: MX-PFIZER INC-202201222995

PATIENT
  Age: 12 Year
  Sex: Male
  Weight: 47.3 kg

DRUGS (1)
  1. GENOTROPIN [Suspect]
     Active Substance: SOMATROPIN
     Indication: Primary hypothyroidism
     Dosage: 16 IU (0.9MG / 2.7UI)
     Route: 058
     Dates: start: 20170509

REACTIONS (2)
  - Drug dose omission by device [Unknown]
  - Device connection issue [Unknown]
